FAERS Safety Report 13633279 (Version 1)
Quarter: 2017Q2

REPORT INFORMATION
  Report Type: Spontaneous
  Country: US (occurrence: US)
  Receive Date: 20170531
  Receipt Date: 20170531
  Transmission Date: 20170830
  Serious: No
  Sender: FDA-Public Use
  Company Number: US-ASTELLAS-1523588

PATIENT
  Sex: Female
  Weight: 37.23 kg

DRUGS (2)
  1. TARCEVA [Suspect]
     Active Substance: ERLOTINIB HYDROCHLORIDE
     Route: 048
     Dates: start: 20141208
  2. TARCEVA [Suspect]
     Active Substance: ERLOTINIB HYDROCHLORIDE
     Indication: PRODUCT USED FOR UNKNOWN INDICATION
     Route: 065

REACTIONS (1)
  - Furuncle [Unknown]
